FAERS Safety Report 11575587 (Version 1)
Quarter: 2015Q3

REPORT INFORMATION
  Report Type: Spontaneous
  Country: US (occurrence: US)
  Receive Date: 20150930
  Receipt Date: 20150930
  Transmission Date: 20151125
  Serious: No
  Sender: FDA-Public Use
  Company Number: US-BIOGENIDEC-2015BI131142

PATIENT

DRUGS (1)
  1. TECFIDERA [Suspect]
     Active Substance: DIMETHYL FUMARATE
     Indication: MULTIPLE SCLEROSIS

REACTIONS (8)
  - Nausea [Unknown]
  - Drooling [Unknown]
  - Pruritus [Unknown]
  - Flushing [Unknown]
  - Alopecia [Unknown]
  - Eye disorder [Unknown]
  - Anxiety [Unknown]
  - Dry mouth [Unknown]

NARRATIVE: CASE EVENT DATE: 201509
